FAERS Safety Report 10243301 (Version 4)
Quarter: 2014Q3

REPORT INFORMATION
  Report Type: Spontaneous
  Country: US (occurrence: None)
  Receive Date: 20140616
  Receipt Date: 20140811
  Transmission Date: 20150326
  Serious: Yes (Other)
  Sender: FDA-Public Use
  Company Number: UNT-2014-000270

PATIENT
  Age: 76 Year
  Sex: Female
  Weight: 76.7 kg

DRUGS (1)
  1. TYVASO [Suspect]
     Active Substance: TREPROSTINIL
     Indication: PULMONARY ARTERIAL HYPERTENSION
     Route: 055
     Dates: start: 20140424

REACTIONS (16)
  - Feeling abnormal [None]
  - Vomiting [None]
  - Dyspnoea [None]
  - Flushing [None]
  - Lethargy [None]
  - Secretion discharge [None]
  - Cataract operation [None]
  - Asthenia [None]
  - Dizziness [None]
  - Abdominal distension [None]
  - Local swelling [None]
  - Nausea [None]
  - Peripheral swelling [None]
  - Headache [None]
  - Cough [None]
  - Therapy cessation [None]

NARRATIVE: CASE EVENT DATE: 201405
